FAERS Safety Report 12588014 (Version 2)
Quarter: 2016Q3

REPORT INFORMATION
  Report Type: Spontaneous
  Country: JP (occurrence: JP)
  Receive Date: 20160725
  Receipt Date: 20160825
  Transmission Date: 20161109
  Serious: Yes (Death)
  Sender: FDA-Public Use
  Company Number: JP-SA-2016SA133317

PATIENT
  Age: 67 Year
  Sex: Male
  Weight: 53.3 kg

DRUGS (4)
  1. DECADRON [Concomitant]
     Active Substance: DEXAMETHASONE
     Indication: PREMEDICATION
     Route: 065
     Dates: start: 20100517, end: 20100607
  2. ALIMTA [Suspect]
     Active Substance: PEMETREXED DISODIUM
     Indication: LUNG NEOPLASM MALIGNANT
     Route: 065
     Dates: start: 20100629, end: 20100629
  3. TAXOTERE [Suspect]
     Active Substance: DOCETAXEL
     Indication: LUNG NEOPLASM MALIGNANT
     Route: 041
     Dates: start: 20100517, end: 20100517
  4. TAXOTERE [Suspect]
     Active Substance: DOCETAXEL
     Indication: LUNG NEOPLASM MALIGNANT
     Route: 041
     Dates: start: 20100607, end: 20100607

REACTIONS (6)
  - PO2 decreased [Unknown]
  - Pulmonary toxicity [Fatal]
  - Condition aggravated [Fatal]
  - Dyspnoea [Unknown]
  - General physical health deterioration [Fatal]
  - Malaise [Unknown]

NARRATIVE: CASE EVENT DATE: 20100705
